FAERS Safety Report 17110790 (Version 1)
Quarter: 2019Q4

REPORT INFORMATION
  Report Type: Report from Study
  Country: US (occurrence: US)
  Receive Date: 20191204
  Receipt Date: 20191204
  Transmission Date: 20200122
  Serious: Yes (Other)
  Sender: FDA-Public Use
  Company Number: NVSC2019US051834

PATIENT
  Age: 16 Month
  Sex: Male
  Weight: 4.58 kg

DRUGS (7)
  1. COTRIMAXAZOLE [Concomitant]
     Active Substance: SULFAMETHOXAZOLE\TRIMETHOPRIM
     Indication: PRODUCT USED FOR UNKNOWN INDICATION
     Dosage: 2.5 ML, BID
     Route: 048
     Dates: start: 20190801
  2. ONDANSETRON [Concomitant]
     Active Substance: ONDANSETRON
     Indication: PRODUCT USED FOR UNKNOWN INDICATION
     Dosage: 2 ML, TID
     Route: 048
     Dates: start: 20191029
  3. VORICONAZOLE. [Concomitant]
     Active Substance: VORICONAZOLE
     Indication: PRODUCT USED FOR UNKNOWN INDICATION
     Dosage: 92 MG, BID
     Route: 048
     Dates: start: 20191025
  4. CYCLOPHOSPHAMIDE. [Concomitant]
     Active Substance: CYCLOPHOSPHAMIDE
     Indication: ACUTE LYMPHOCYTIC LEUKAEMIA
     Dosage: 500 MG/M2
     Dates: start: 20191029, end: 20191030
  5. ACYCLOVIR. [Concomitant]
     Active Substance: ACYCLOVIR
     Indication: PRODUCT USED FOR UNKNOWN INDICATION
     Dosage: 2.5 ML, BID
     Route: 048
     Dates: start: 20190920
  6. FLUDARABINE [Concomitant]
     Active Substance: FLUDARABINE PHOSPHATE
     Indication: ACUTE LYMPHOCYTIC LEUKAEMIA
     Dosage: 30 MG/M2
     Dates: start: 20191029, end: 20191101
  7. KYMRIAH [Suspect]
     Active Substance: TISAGENLECLEUCEL
     Indication: ACUTE LYMPHOCYTIC LEUKAEMIA
     Dosage: HE WAS HOSPITALIZED ON 30 OCT 2019 FOR RESPIRATORY DISTRESS AND HYPOXIA AND DEVELOPED FLUID OVERLOAD
     Route: 042
     Dates: start: 20191121

REACTIONS (3)
  - Fungal skin infection [Not Recovered/Not Resolved]
  - Febrile neutropenia [Not Recovered/Not Resolved]
  - Cytokine release syndrome [Not Recovered/Not Resolved]

NARRATIVE: CASE EVENT DATE: 20191124
